FAERS Safety Report 4512612-5 (Version None)
Quarter: 2004Q4

REPORT INFORMATION
  Report Type: 
  Country: None (occurrence: None)
  Receive Date: 20041008
  Receipt Date: 20040827
  Transmission Date: 20050328
  Serious: No
  Sender: FDA-Public Use
  Company Number: 2004S1000175

PATIENT
  Age: 61 Year
  Sex: Male
  Weight: 105.5 kg

DRUGS (11)
  1. CUBICIN [Suspect]
     Indication: ARTHRITIS BACTERIAL
     Dosage: 4 MG/KG; Q24H; IV
     Route: 042
     Dates: start: 20040512, end: 20040622
  2. PRINIVIL [Concomitant]
  3. COREG [Concomitant]
  4. IMDUE [Concomitant]
  5. LASIX [Concomitant]
  6. ASPIRIN [Concomitant]
  7. LIPITOR [Concomitant]
  8. PRILOSEC [Concomitant]
  9. FLEXERIL [Concomitant]
  10. MULTI-VITAMIN [Concomitant]
  11. BENADRYL [Concomitant]

REACTIONS (1)
  - NEPHRITIS INTERSTITIAL [None]
